FAERS Safety Report 9029642 (Version 1)
Quarter: 2013Q1

REPORT INFORMATION
  Report Type: Spontaneous
  Country: ES (occurrence: ES)
  Receive Date: 20130125
  Receipt Date: 20130125
  Transmission Date: 20140127
  Serious: Yes (Other)
  Sender: FDA-Public Use
  Company Number: ES-ELI_LILLY_AND_COMPANY-ES201210002503

PATIENT
  Age: 80 Year
  Sex: Female

DRUGS (3)
  1. FORSTEO [Suspect]
     Indication: OSTEOPOROSIS
     Dosage: UNK
     Dates: start: 20121003
  2. FORSTEO [Suspect]
     Dosage: UNK
  3. FORSTEO [Suspect]
     Dosage: 20 UG, QD
     Route: 058

REACTIONS (9)
  - Loss of consciousness [Unknown]
  - Loss of consciousness [Unknown]
  - Fall [Unknown]
  - Micturition urgency [Unknown]
  - Dizziness [Unknown]
  - Muscular weakness [Unknown]
  - Gait disturbance [Unknown]
  - Dizziness [Unknown]
  - Dizziness [Unknown]
